FAERS Safety Report 4576092-6 (Version None)
Quarter: 2005Q1

REPORT INFORMATION
  Report Type: 
  Country: None (occurrence: None)
  Receive Date: 20050204
  Receipt Date: 20050126
  Transmission Date: 20050727
  Serious: No
  Sender: FDA-Public Use
  Company Number: 05H-167-0288447-00

PATIENT
  Sex: 0

DRUGS (4)
  1. LEUCOVORIN CALCIUM [Suspect]
     Indication: COLORECTAL CANCER
     Dosage: 200 MG/M2, REPEATED ON DAY 2 OF EACH CYCLE, INTRAVENOUS INFUSION
  2. FLUOROURACIL [Suspect]
     Indication: COLORECTAL CANCER
     Dosage: SEE IMAGE
     Route: 042
  3. MMI270 [Suspect]
     Indication: COLORECTAL CANCER
     Dosage: 300 MG, TWICE DAILY, ORAL
     Route: 048
  4. SODIUM CHLORIDE 0.9% [Concomitant]

REACTIONS (1)
  - LETHARGY [None]
